FAERS Safety Report 8334688-X (Version None)
Quarter: 2012Q2

REPORT INFORMATION
  Report Type: 
  Country: None (occurrence: None)
  Receive Date: 20120503
  Receipt Date: 20120501
  Transmission Date: 20120825
  Serious: Yes (Death)
  Sender: FDA-Public Use
  Company Number: GB-ROCHE-1060097

PATIENT
  Sex: Female

DRUGS (2)
  1. AMLODIPINE [Concomitant]
     Indication: HYPERTENSION
     Dates: start: 20090101
  2. LUCENTIS [Suspect]
     Indication: PRODUCT USED FOR UNKNOWN INDICATION
     Route: 050

REACTIONS (1)
  - PNEUMONIA [None]
